FAERS Safety Report 19509950 (Version 1)
Quarter: 2021Q3

REPORT INFORMATION
  Report Type: Spontaneous
  Country: US (occurrence: US)
  Receive Date: 20210708
  Receipt Date: 20210708
  Transmission Date: 20211014
  Serious: Yes (Other)
  Sender: FDA-Public Use
  Company Number: US-ENDO PHARMACEUTICALS INC-2021-007541

PATIENT
  Age: 61 Year
  Sex: Male

DRUGS (16)
  1. ZANTAC [Suspect]
     Active Substance: RANITIDINE HYDROCHLORIDE
     Indication: GASTROOESOPHAGEAL REFLUX DISEASE
     Dosage: 150 MG, DAILY
     Route: 065
     Dates: start: 200509, end: 201908
  2. ZANTAC [Suspect]
     Active Substance: RANITIDINE HYDROCHLORIDE
     Indication: INTESTINAL ULCER
  3. RANITIDINE HYDROCHLORIDE. [Suspect]
     Active Substance: RANITIDINE HYDROCHLORIDE
     Indication: GASTROOESOPHAGEAL REFLUX DISEASE
     Dosage: 150 MG, DAILY
     Route: 065
     Dates: start: 200509, end: 201908
  4. ZANTAC [Suspect]
     Active Substance: RANITIDINE HYDROCHLORIDE
     Indication: DYSPEPSIA
  5. ZANTAC [Suspect]
     Active Substance: RANITIDINE HYDROCHLORIDE
     Indication: DYSPEPSIA
  6. RANITIDINE. [Suspect]
     Active Substance: RANITIDINE
     Indication: GASTROOESOPHAGEAL REFLUX DISEASE
     Dosage: 150 MG, DAILY
     Route: 065
     Dates: start: 200509, end: 201908
  7. RANITIDINE. [Suspect]
     Active Substance: RANITIDINE
     Indication: DYSPEPSIA
  8. RANITIDINE. [Suspect]
     Active Substance: RANITIDINE
     Indication: GASTRIC ULCER
     Dosage: 300 MG, DAILY
     Route: 065
     Dates: start: 200509, end: 201908
  9. RANITIDINE. [Suspect]
     Active Substance: RANITIDINE
     Indication: INTESTINAL ULCER
  10. ZANTAC [Suspect]
     Active Substance: RANITIDINE HYDROCHLORIDE
     Indication: INTESTINAL ULCER
  11. ZANTAC [Suspect]
     Active Substance: RANITIDINE HYDROCHLORIDE
     Indication: GASTROOESOPHAGEAL REFLUX DISEASE
     Dosage: 150 MG, DAILY
     Route: 065
     Dates: start: 200509, end: 201908
  12. RANITIDINE HYDROCHLORIDE. [Suspect]
     Active Substance: RANITIDINE HYDROCHLORIDE
     Indication: INTESTINAL ULCER
  13. ZANTAC [Suspect]
     Active Substance: RANITIDINE HYDROCHLORIDE
     Indication: GASTRIC ULCER
     Dosage: 300 MG, DAILY
     Route: 065
     Dates: start: 200509, end: 201908
  14. RANITIDINE HYDROCHLORIDE. [Suspect]
     Active Substance: RANITIDINE HYDROCHLORIDE
     Indication: GASTRIC ULCER
     Dosage: 300 MG, DAILY
     Route: 065
     Dates: start: 200509, end: 201908
  15. RANITIDINE HYDROCHLORIDE. [Suspect]
     Active Substance: RANITIDINE HYDROCHLORIDE
     Indication: DYSPEPSIA
  16. ZANTAC [Suspect]
     Active Substance: RANITIDINE HYDROCHLORIDE
     Indication: GASTRIC ULCER
     Dosage: 300 MG, DAILY
     Route: 065
     Dates: start: 200509, end: 201908

REACTIONS (1)
  - Oesophageal carcinoma [Recovering/Resolving]

NARRATIVE: CASE EVENT DATE: 20141001
